FAERS Safety Report 5838924-0 (Version None)
Quarter: 2008Q3

REPORT INFORMATION
  Report Type: 
  Country: None (occurrence: None)
  Receive Date: 20080808
  Receipt Date: 20080731
  Transmission Date: 20090109
  Serious: Yes (Other)
  Sender: FDA-Public Use
  Company Number: PHHY2008CA16702

PATIENT
  Sex: Female

DRUGS (8)
  1. CLOZARIL [Suspect]
     Indication: SCHIZOPHRENIA
     Dosage: 150 UNK, BID
     Route: 048
  2. CLOZARIL [Suspect]
     Dosage: 350 UNK, QHS
     Route: 048
  3. CIPROFLOXACIN [Concomitant]
     Dosage: UNK
     Dates: start: 20080712, end: 20080719
  4. LIPITOR [Concomitant]
  5. METFORMIN HCL [Concomitant]
  6. DIAMICRON [Concomitant]
  7. COLACE [Concomitant]
  8. ARICEPT [Concomitant]
     Dosage: UNK
     Dates: start: 20080501

REACTIONS (4)
  - AKATHISIA [None]
  - CONFUSIONAL STATE [None]
  - DRUG LEVEL CHANGED [None]
  - HEMIPARESIS [None]
